FAERS Safety Report 6406193-9 (Version None)
Quarter: 2009Q4

REPORT INFORMATION
  Report Type: 
  Country: None (occurrence: None)
  Receive Date: 20091019
  Receipt Date: 20091007
  Transmission Date: 20100525
  Serious: Yes (Hospitalization)
  Sender: FDA-Public Use
  Company Number: FR-CELGENEUS-056-C5013-09100613

PATIENT
  Sex: Male
  Weight: 68 kg

DRUGS (1)
  1. CC-5013 [Suspect]
     Indication: NON-HODGKIN'S LYMPHOMA
     Route: 048
     Dates: start: 20090202, end: 20091005

REACTIONS (3)
  - NEUTROPENIA [None]
  - PNEUMOCOCCAL INFECTION [None]
  - SEPSIS [None]
